FAERS Safety Report 5093356-0 (Version None)
Quarter: 2006Q3

REPORT INFORMATION
  Report Type: 
  Country: None (occurrence: None)
  Receive Date: 20060828
  Receipt Date: 20060816
  Transmission Date: 20061208
  Serious: Yes (Hospitalization, Other)
  Sender: FDA-Public Use
  Company Number: 2006101039

PATIENT
  Age: 51 Year
  Sex: Male

DRUGS (11)
  1. TAHOR (ATORVASTATIN) [Suspect]
     Indication: DRUG USE FOR UNKNOWN INDICATION
     Dosage: 20 MG (20 MG, 1 IN 1 D), ORAL
     Route: 048
     Dates: start: 20060502, end: 20060509
  2. DALACIN [Concomitant]
  3. PLAVIX [Concomitant]
  4. RAMIPRIL [Concomitant]
  5. SECTRAL [Concomitant]
  6. OMEPRAZOLE [Concomitant]
  7. LEXOMIL (BROMAZEPAM) [Concomitant]
  8. BACTRIM [Concomitant]
  9. ACENOCOUMAROL (ACENOCOUMAROL) [Concomitant]
  10. INSULIN HUMAN (INSULIN HUMAN) [Concomitant]
  11. PRAVASTATIN [Concomitant]

REACTIONS (13)
  - ALANINE AMINOTRANSFERASE INCREASED [None]
  - ASPARTATE AMINOTRANSFERASE INCREASED [None]
  - BLOOD ALKALINE PHOSPHATASE INCREASED [None]
  - BLOOD BILIRUBIN INCREASED [None]
  - BLOOD CREATINE PHOSPHOKINASE INCREASED [None]
  - BLOOD CREATININE INCREASED [None]
  - BLOOD LACTATE DEHYDROGENASE INCREASED [None]
  - BLOOD TRIGLYCERIDES INCREASED [None]
  - CHOLESTASIS [None]
  - DIABETES MELLITUS INADEQUATE CONTROL [None]
  - GAMMA-GLUTAMYLTRANSFERASE INCREASED [None]
  - LIVER DISORDER [None]
  - PERIPHERAL ISCHAEMIA [None]
